FAERS Safety Report 8881078 (Version 1)
Quarter: 2012Q4

REPORT INFORMATION
  Report Type: Report from Study
  Country: US (occurrence: US)
  Receive Date: 20121101
  Receipt Date: 20121101
  Transmission Date: 20130627
  Serious: Yes (Hospitalization)
  Sender: FDA-Public Use
  Company Number: US-ABBOTT-12P-163-0983627-00

PATIENT
  Sex: Female
  Weight: 84.44 kg

DRUGS (2)
  1. HUMIRA [Suspect]
     Indication: RHEUMATOID ARTHRITIS
     Dates: start: 201203
  2. HUMIRA [Suspect]
     Dates: start: 201202

REACTIONS (4)
  - White blood cell count increased [Recovered/Resolved]
  - Pneumonia [Unknown]
  - Dyspnoea [Unknown]
  - Bronchitis [Unknown]
